FAERS Safety Report 5801510-2 (Version None)
Quarter: 2008Q3

REPORT INFORMATION
  Report Type: 
  Country: None (occurrence: None)
  Receive Date: 20080702
  Receipt Date: 20080620
  Transmission Date: 20090109
  Serious: Yes (Hospitalization)
  Sender: FDA-Public Use
  Company Number: 14408

PATIENT
  Age: 39 Year
  Sex: Male

DRUGS (1)
  1. MORPHINE SULFATE [Suspect]
     Indication: PAIN
     Dosage: 60MG TWICE DAILY ORAL
     Route: 048
     Dates: start: 20080615

REACTIONS (5)
  - DISORIENTATION [None]
  - HAEMATEMESIS [None]
  - HYPOVENTILATION [None]
  - OVERDOSE [None]
  - PHARMACEUTICAL PRODUCT COMPLAINT [None]
